FAERS Safety Report 8238723-9 (Version None)
Quarter: 2012Q1

REPORT INFORMATION
  Report Type: 
  Country: None (occurrence: None)
  Receive Date: 20120327
  Receipt Date: 20120327
  Transmission Date: 20120608
  Serious: Yes (Hospitalization)
  Sender: FDA-Public Use
  Company Number: CO-ABBOTT-12P-036-0910805-00

PATIENT
  Age: 82 Year
  Sex: Male
  Weight: 84 kg

DRUGS (4)
  1. CAPTOPIRIL [Concomitant]
     Indication: HYPERTENSION
  2. BETAMETHASONE [Concomitant]
     Indication: PSORIASIS
  3. HUMIRA [Suspect]
     Indication: PSORIASIS
     Route: 058
     Dates: start: 20110923
  4. CLOBETASOL PROPIONATE [Concomitant]
     Indication: PSORIASIS

REACTIONS (3)
  - VERTIGO [None]
  - HYPERTENSIVE CRISIS [None]
  - CHEST PAIN [None]
